FAERS Safety Report 12269645 (Version 1)
Quarter: 2016Q2

REPORT INFORMATION
  Report Type: Spontaneous
  Country: SE (occurrence: SE)
  Receive Date: 20160414
  Receipt Date: 20160414
  Transmission Date: 20160815
  Serious: Yes (Other)
  Sender: FDA-Public Use
  Company Number: SE-TEVA-649741ISR

PATIENT
  Age: 73 Year
  Sex: Male

DRUGS (1)
  1. FLUOROURACIL. [Suspect]
     Active Substance: FLUOROURACIL

REACTIONS (6)
  - Rash erythematous [Unknown]
  - Infection [Unknown]
  - Skin fissures [Unknown]
  - Peripheral swelling [Unknown]
  - Erythema [Unknown]
  - Skin exfoliation [Unknown]
